FAERS Safety Report 9910892 (Version 1)
Quarter: 2014Q1

REPORT INFORMATION
  Report Type: Spontaneous
  Country: US (occurrence: US)
  Receive Date: 20140219
  Receipt Date: 20140219
  Transmission Date: 20141002
  Serious: No
  Sender: FDA-Public Use
  Company Number: US-GILEAD-2014-0094616

PATIENT
  Sex: Female

DRUGS (4)
  1. SOVALDI [Suspect]
     Indication: HEPATITIS C
     Dosage: 400 MG, QD
     Route: 048
     Dates: start: 20140209
  2. SOVALDI [Suspect]
     Dosage: 800 MG, QD
     Route: 048
     Dates: start: 20140213, end: 20140213
  3. PEGINTERFERON [Concomitant]
  4. RIBAVIRIN [Concomitant]

REACTIONS (1)
  - Overdose [Recovered/Resolved]
